FAERS Safety Report 5707427-6 (Version None)
Quarter: 2008Q2

REPORT INFORMATION
  Report Type: 
  Country: None (occurrence: None)
  Receive Date: 20080416
  Receipt Date: 20080410
  Transmission Date: 20081010
  Serious: Yes (Other)
  Sender: FDA-Public Use
  Company Number: ES-BOEHRINGER INGELHEIM GMBH, GERMANY-2008-DE-02178GD

PATIENT
  Age: 41 Year
  Sex: Female

DRUGS (5)
  1. NEVIRAPINE [Suspect]
     Indication: HIV INFECTION CDC CATEGORY A1
     Dates: start: 20000101, end: 20010101
  2. LAMIVUDINE [Suspect]
     Indication: HIV INFECTION CDC CATEGORY A1
     Dates: start: 19970101, end: 20010101
  3. ZIDOVUDINE [Suspect]
     Indication: HIV INFECTION CDC CATEGORY A1
     Dates: start: 19970101, end: 20010101
  4. EFAVIRENZ [Suspect]
     Indication: HIV INFECTION CDC CATEGORY A1
     Dates: start: 19990101, end: 20000101
  5. INDINIVIR SULFATE [Suspect]
     Indication: HIV INFECTION CDC CATEGORY A1
     Dates: start: 19970101, end: 19990101

REACTIONS (2)
  - ANGIOLIPOMA [None]
  - PARTIAL LIPODYSTROPHY [None]
